FAERS Safety Report 4595437-4 (Version None)
Quarter: 2005Q1

REPORT INFORMATION
  Report Type: 
  Country: None (occurrence: None)
  Receive Date: 20050224
  Receipt Date: 20050207
  Transmission Date: 20050727
  Serious: Yes (Death, Other)
  Sender: FDA-Public Use
  Company Number: US_0502112236

PATIENT
  Age: 19 Year
  Sex: Male

DRUGS (2)
  1. PROZAC [Suspect]
     Indication: MENTAL DISORDER
     Dates: start: 20000101, end: 20020701
  2. FLUOXETINE [Concomitant]

REACTIONS (2)
  - COMPLETED SUICIDE [None]
  - INJURY ASPHYXIATION [None]
